FAERS Safety Report 18784057 (Version 3)
Quarter: 2021Q2

REPORT INFORMATION
  Report Type: Report from Study
  Country: US (occurrence: US)
  Receive Date: 20210125
  Receipt Date: 20210414
  Transmission Date: 20210717
  Serious: Yes (Hospitalization, Other)
  Sender: FDA-Public Use
  Company Number: US-TAKEDA-2021TUS004618

PATIENT
  Sex: Male
  Weight: 48.98 kg

DRUGS (26)
  1. PANCRELIPASE. [Concomitant]
     Active Substance: PANCRELIPASE
     Dosage: 1 DOSAGE FORM, PRN
     Route: 048
     Dates: start: 20161114
  2. PANTOPRAZOLE [Concomitant]
     Active Substance: PANTOPRAZOLE
     Dosage: 40 MILLIGRAM, BID
     Route: 048
     Dates: start: 20200924
  3. PYRIDOXINE [Concomitant]
     Active Substance: PYRIDOXINE
     Dosage: 50 MILLIGRAM, BID
     Route: 048
     Dates: start: 20171106
  4. FLAGYL [Concomitant]
     Active Substance: METRONIDAZOLE\METRONIDAZOLE HYDROCHLORIDE
     Dosage: 250 MILLIGRAM, TID
     Route: 048
     Dates: start: 20210121
  5. FLAGYL [Concomitant]
     Active Substance: METRONIDAZOLE\METRONIDAZOLE HYDROCHLORIDE
     Dosage: 250 MILLIGRAM, QD
     Route: 048
     Dates: start: 20200925
  6. TEDUGLUTIDE [Suspect]
     Active Substance: TEDUGLUTIDE
     Indication: SHORT-BOWEL SYNDROME
     Dosage: 2.7 MILLIGRAM, QD
     Route: 058
     Dates: start: 20201228
  7. TACROLIMUS. [Concomitant]
     Active Substance: TACROLIMUS
     Dosage: 1 MILLIGRAM, QD
     Route: 048
     Dates: start: 20201120
  8. PHYTONADIONE. [Concomitant]
     Active Substance: PHYTONADIONE
     Dosage: 5 MILLIGRAM, 1/WEEK
     Route: 058
     Dates: start: 20210111
  9. KEPPRA [Concomitant]
     Active Substance: LEVETIRACETAM
     Dosage: 500 MILLIGRAM, BID
     Route: 048
     Dates: start: 20171030
  10. POTASSIUM PHOSPHATE MONOBASIC;SODIUM PHOSPHATE [Concomitant]
     Dosage: 2 DOSAGE FORM, TID
     Route: 048
     Dates: start: 20201228
  11. TEDUGLUTIDE [Suspect]
     Active Substance: TEDUGLUTIDE
     Indication: MALABSORPTION
     Dosage: 0.270 UNK, QD
     Route: 050
     Dates: start: 20201230
  12. TACROLIMUS. [Concomitant]
     Active Substance: TACROLIMUS
     Dosage: 2 MILLIGRAM
     Route: 048
     Dates: start: 20201120
  13. AQUA?E OMEGA [Concomitant]
     Dosage: 20 INTERNATIONAL UNIT, QD
     Route: 048
     Dates: start: 20181022
  14. PANCRELIPASE. [Concomitant]
     Active Substance: PANCRELIPASE
     Dosage: 3 DOSAGE FORM, TID
     Route: 048
     Dates: start: 20161114
  15. IMODIUM A?D [Concomitant]
     Active Substance: LOPERAMIDE HYDROCHLORIDE
     Dosage: 2 MILLIGRAM, TID
     Route: 048
     Dates: start: 20210121
  16. TEDUGLUTIDE [Suspect]
     Active Substance: TEDUGLUTIDE
     Indication: SHORT-BOWEL SYNDROME
     Dosage: 2.7 MILLIGRAM, QD
     Route: 058
     Dates: start: 20201228
  17. TEDUGLUTIDE [Suspect]
     Active Substance: TEDUGLUTIDE
     Indication: MALABSORPTION
     Dosage: 0.270 UNK, QD
     Route: 050
     Dates: start: 20201230
  18. TEDUGLUTIDE [Suspect]
     Active Substance: TEDUGLUTIDE
     Indication: MALABSORPTION
     Dosage: 0.270 UNK, QD
     Route: 050
     Dates: start: 20201230
  19. CALCIUM CARBONATE. [Concomitant]
     Active Substance: CALCIUM CARBONATE
     Dosage: 750 MILLIGRAM, TID
     Route: 048
     Dates: start: 20200926
  20. SIMETHICONE (DIMETHICONE) [Concomitant]
     Active Substance: DIMETHICONE
     Dosage: 80 MILLIGRAM, BID
     Route: 048
     Dates: start: 20170216
  21. SODIUM CHLORIDE. [Concomitant]
     Active Substance: SODIUM CHLORIDE
     Dosage: 1 GRAM, TID
     Route: 048
     Dates: start: 20201106
  22. TEDUGLUTIDE [Suspect]
     Active Substance: TEDUGLUTIDE
     Indication: MALABSORPTION
     Dosage: 0.270 UNK, QD
     Route: 050
     Dates: start: 20201230
  23. CHOLECALCIFEROL [Concomitant]
     Active Substance: CHOLECALCIFEROL
     Dosage: 8000 MILLIGRAM, QD
     Route: 048
     Dates: start: 20190416
  24. TEDUGLUTIDE [Suspect]
     Active Substance: TEDUGLUTIDE
     Indication: SHORT-BOWEL SYNDROME
     Dosage: 2.7 MILLIGRAM, QD
     Route: 058
     Dates: start: 20201228
  25. TEDUGLUTIDE [Suspect]
     Active Substance: TEDUGLUTIDE
     Indication: SHORT-BOWEL SYNDROME
     Dosage: 2.7 MILLIGRAM, QD
     Route: 058
     Dates: start: 20201228
  26. URSODIOL. [Concomitant]
     Active Substance: URSODIOL
     Dosage: 300 MILLIGRAM, BID
     Route: 048
     Dates: start: 20210121

REACTIONS (1)
  - Small intestinal obstruction [Recovering/Resolving]
